FAERS Safety Report 6469126-5 (Version None)
Quarter: 2009Q4

REPORT INFORMATION
  Report Type: 
  Country: None (occurrence: None)
  Receive Date: 20091203
  Receipt Date: 20080222
  Transmission Date: 20100525
  Serious: No
  Sender: FDA-Public Use
  Company Number: CA-ELI_LILLY_AND_COMPANY-CA200701001243

PATIENT
  Sex: Female

DRUGS (10)
  1. FORTEO [Suspect]
     Indication: OSTEOPOROSIS
     Dosage: 20 UG, DAILY (1/D)
     Route: 058
     Dates: start: 20060301
  2. WARFARIN SODIUM [Concomitant]
  3. AMIODARONE HCL [Concomitant]
  4. SYMBICORT                               /CAN/ [Concomitant]
  5. BUDESONIDE [Concomitant]
  6. LEVOTHYROXINE SODIUM [Concomitant]
  7. VITAMIN A [Concomitant]
  8. VITAMIN D [Concomitant]
  9. NITROGLYCERIN [Concomitant]
  10. BETA BLOCKING AGENTS [Concomitant]

REACTIONS (1)
  - NO ADVERSE EVENT [None]
